FAERS Safety Report 11876821 (Version 2)
Quarter: 2016Q1

REPORT INFORMATION
  Report Type: Report from Study
  Country: US (occurrence: US)
  Receive Date: 20151229
  Receipt Date: 20160111
  Transmission Date: 20160526
  Serious: Yes (Hospitalization, Other)
  Sender: FDA-Public Use
  Company Number: US-BRISTOL-MYERS SQUIBB COMPANY-BMS-2015-088723

PATIENT
  Age: 83 Year
  Sex: Male
  Weight: 63.9 kg

DRUGS (10)
  1. ABIRATERONE [Concomitant]
     Active Substance: ABIRATERONE
     Indication: PROSTATE CANCER METASTATIC
     Dosage: 1000 MG, QD
     Route: 048
     Dates: start: 20130913, end: 20150211
  2. CARAFATE [Concomitant]
     Active Substance: SUCRALFATE
     Indication: PRODUCT USED FOR UNKNOWN INDICATION
     Dosage: UNK, BID
     Route: 048
  3. FERROUS SULFATE [Concomitant]
     Active Substance: FERROUS SULFATE\FERROUS SULFATE, DRIED
     Indication: PRODUCT USED FOR UNKNOWN INDICATION
     Dosage: 325 MG, QD
     Route: 048
  4. DASATINIB [Suspect]
     Active Substance: DASATINIB
     Indication: PROSTATE CANCER METASTATIC
     Dosage: 100 MG, QD
     Route: 048
     Dates: start: 20130913, end: 20151102
  5. PREDNISONE. [Concomitant]
     Active Substance: PREDNISONE
     Indication: PROSTATE CANCER METASTATIC
     Dosage: 5 MG, QD
     Route: 048
  6. BENAZEPRIL AND HYDROCHLOROTHIAZIDE [Concomitant]
     Active Substance: BENAZEPRIL HYDROCHLORIDE\HYDROCHLOROTHIAZIDE
     Indication: PRODUCT USED FOR UNKNOWN INDICATION
     Dosage: 1 DF, QD
     Route: 048
  7. FUROSEMIDE. [Concomitant]
     Active Substance: FUROSEMIDE
     Indication: PRODUCT USED FOR UNKNOWN INDICATION
     Dosage: 1 TAB, QD
     Route: 048
  8. FLOMAX [Concomitant]
     Active Substance: TAMSULOSIN HYDROCHLORIDE
     Indication: PRODUCT USED FOR UNKNOWN INDICATION
     Dosage: 0.4 MG, QD
     Route: 048
  9. FOLIC ACID. [Concomitant]
     Active Substance: FOLIC ACID
     Indication: PRODUCT USED FOR UNKNOWN INDICATION
     Dosage: 1 MG, QD
     Route: 048
  10. GUAIFENESIN. [Concomitant]
     Active Substance: GUAIFENESIN
     Indication: PRODUCT USED FOR UNKNOWN INDICATION
     Dosage: 5 ML, Q4H
     Route: 048

REACTIONS (3)
  - Posterior reversible encephalopathy syndrome [Unknown]
  - Arteriovenous malformation [Unknown]
  - Pleural effusion [Unknown]

NARRATIVE: CASE EVENT DATE: 20151002
